FAERS Safety Report 6821286-X (Version None)
Quarter: 2010Q3

REPORT INFORMATION
  Report Type: 
  Country: None (occurrence: None)
  Receive Date: 20100707
  Receipt Date: 20080627
  Transmission Date: 20110219
  Serious: No
  Sender: FDA-Public Use
  Company Number: US-PFIZER INC-2008051026

PATIENT
  Sex: Female
  Weight: 116.36 kg

DRUGS (4)
  1. ZOLOFT [Suspect]
     Indication: ANXIETY
  2. SERTRALINE HCL [Suspect]
  3. VITAMINS [Concomitant]
  4. ACETYLSALICYLIC ACID [Concomitant]

REACTIONS (3)
  - DYSGEUSIA [None]
  - FEELING JITTERY [None]
  - NERVOUSNESS [None]
